FAERS Safety Report 26163097 (Version 1)
Quarter: 2025Q4

REPORT INFORMATION
  Report Type: Spontaneous
  Country: EU (occurrence: EU)
  Receive Date: 20251216
  Receipt Date: 20251216
  Transmission Date: 20260118
  Serious: Yes (Other)
  Sender: ALCON
  Company Number: EU-ALCON LABORATORIES-ALC2025FR007452

PATIENT

DRUGS (2)
  1. ATROPINE [Suspect]
     Active Substance: ATROPINE
     Indication: Cycloplegia
     Dosage: UNK
     Route: 047
     Dates: start: 20251115
  2. ATROPINE [Suspect]
     Active Substance: ATROPINE
     Indication: Mydriasis

REACTIONS (3)
  - Cycloplegia [Not Recovered/Not Resolved]
  - Mydriasis [Not Recovered/Not Resolved]
  - Vision blurred [Not Recovered/Not Resolved]

NARRATIVE: CASE EVENT DATE: 20251119
